FAERS Safety Report 15568943 (Version 2)
Quarter: 2018Q4

REPORT INFORMATION
  Report Type: Spontaneous
  Country: US (occurrence: US)
  Receive Date: 20181031
  Receipt Date: 20181204
  Transmission Date: 20190205
  Serious: No
  Sender: FDA-Public Use
  Company Number: US-ASTRAZENECA-2018SF28718

PATIENT
  Age: 3543 Week
  Sex: Female
  Weight: 170 kg

DRUGS (4)
  1. SYMBICORT [Suspect]
     Active Substance: BUDESONIDE\FORMOTEROL FUMARATE DIHYDRATE
     Indication: BRONCHITIS
     Dosage: 160/4.5 MCG, ONE PUFF TWICE DAILY
     Route: 055
     Dates: start: 201807, end: 201807
  2. SYMBICORT [Suspect]
     Active Substance: BUDESONIDE\FORMOTEROL FUMARATE DIHYDRATE
     Indication: BRONCHITIS
     Route: 055
  3. NYSTATIN. [Concomitant]
     Active Substance: NYSTATIN
  4. VENTOLIN [Concomitant]
     Active Substance: ALBUTEROL SULFATE
     Indication: BRONCHITIS
     Dosage: UNKNOWN
     Route: 055
     Dates: start: 201807

REACTIONS (7)
  - Humidity intolerance [Unknown]
  - Off label use [Unknown]
  - Product taste abnormal [Unknown]
  - Candida infection [Recovered/Resolved]
  - Intentional device misuse [Unknown]
  - Device failure [Unknown]
  - Bronchitis [Not Recovered/Not Resolved]

NARRATIVE: CASE EVENT DATE: 201807
